FAERS Safety Report 17614944 (Version 1)
Quarter: 2020Q1

REPORT INFORMATION
  Report Type: Spontaneous
  Country: US (occurrence: US)
  Receive Date: 20200331
  Receipt Date: 20200331
  Transmission Date: 20200409
  Serious: No
  Sender: FDA-Public Use
  Company Number: None

PATIENT
  Age: 61 Year
  Sex: Female

DRUGS (1)
  1. COPAXONE [Suspect]
     Active Substance: GLATIRAMER ACETATE
     Route: 058
     Dates: start: 202001

REACTIONS (7)
  - Flushing [None]
  - Dyspnoea [None]
  - Palpitations [None]
  - Urticaria [None]
  - Anxiety [None]
  - Post procedural complication [None]
  - Chest pain [None]

NARRATIVE: CASE EVENT DATE: 20200331
